FAERS Safety Report 7381481-0 (Version None)
Quarter: 2011Q1

REPORT INFORMATION
  Report Type: 
  Country: None (occurrence: None)
  Receive Date: 20110329
  Receipt Date: 20110324
  Transmission Date: 20110831
  Serious: Yes (Death)
  Sender: FDA-Public Use
  Company Number: JP-SHIRE-SPV1-2011-00483

PATIENT
  Age: 57 Year
  Sex: Female

DRUGS (1)
  1. FOSRENOL [Suspect]
     Indication: HYPERPHOSPHATAEMIA
     Dosage: 750 MG, UNK
     Dates: start: 20110309, end: 20110320

REACTIONS (2)
  - PERITONITIS [None]
  - RECTAL PERFORATION [None]
